FAERS Safety Report 7036843-8 (Version None)
Quarter: 2010Q4

REPORT INFORMATION
  Report Type: 
  Country: None (occurrence: None)
  Receive Date: 20101011
  Receipt Date: 20100929
  Transmission Date: 20110411
  Serious: Yes (Hospitalization)
  Sender: FDA-Public Use
  Company Number: AU-JNJFOC-20100900697

PATIENT
  Sex: Male
  Weight: 59 kg

DRUGS (19)
  1. GOLIMUMAB [Suspect]
     Indication: RHEUMATOID ARTHRITIS
     Route: 042
  2. GOLIMUMAB [Suspect]
     Route: 042
  3. METHOTREXATE [Suspect]
     Indication: RHEUMATOID ARTHRITIS
  4. TELFAST [Concomitant]
     Indication: PROPHYLAXIS
     Route: 048
  5. PARACETAMOL [Concomitant]
     Indication: ARTHRALGIA
     Route: 048
  6. PARACETAMOL [Concomitant]
     Route: 048
  7. PARACETAMOL [Concomitant]
     Indication: PROPHYLAXIS
     Route: 048
  8. PARACETAMOL [Concomitant]
     Route: 048
  9. FOLIC ACID [Concomitant]
     Indication: PROPHYLAXIS
     Route: 048
  10. PANAMAX [Concomitant]
     Indication: ARTHRALGIA
     Route: 048
  11. MONODUR [Concomitant]
     Indication: MYOCARDIAL ISCHAEMIA
     Route: 048
  12. DILTIAZEM [Concomitant]
     Indication: MYOCARDIAL ISCHAEMIA
     Route: 048
  13. LOVAN [Concomitant]
     Indication: DEPRESSION
     Route: 048
  14. SIMVASTATIN [Concomitant]
     Indication: HYPERCHOLESTEROLAEMIA
     Route: 048
  15. FUROSEMIDE [Concomitant]
     Indication: MYOCARDIAL ISCHAEMIA
     Route: 048
  16. FUROSEMIDE [Concomitant]
     Indication: FLUID RETENTION
     Route: 048
  17. NEXIUM [Concomitant]
     Indication: GASTROOESOPHAGEAL REFLUX DISEASE
     Route: 048
  18. TEMAZEPAM [Concomitant]
     Indication: INSOMNIA
     Route: 048
  19. ASPIRIN [Concomitant]
     Indication: CARDIOVASCULAR EVENT PROPHYLAXIS
     Route: 048

REACTIONS (1)
  - INTERSTITIAL LUNG DISEASE [None]
